FAERS Safety Report 10423192 (Version 1)
Quarter: 2014Q3

REPORT INFORMATION
  Report Type: Spontaneous
  Country: US (occurrence: None)
  Receive Date: 20140722
  Receipt Date: 20140722
  Transmission Date: 20150326
  Serious: No
  Sender: FDA-Public Use
  Company Number: 163-10004-14061355

PATIENT
  Age: 74 Year
  Sex: Female

DRUGS (4)
  1. PREMARIN (ESTROGENS CONJUGATED) [Concomitant]
  2. FOLIC ACID. [Concomitant]
     Active Substance: FOLIC ACID
  3. CLARITIN [Concomitant]
     Active Substance: LORATADINE
  4. OTEZLA [Suspect]
     Active Substance: APREMILAST
     Indication: PSORIATIC ARTHROPATHY
     Route: 048
     Dates: start: 2014

REACTIONS (1)
  - Headache [None]
